FAERS Safety Report 8455758-1 (Version None)
Quarter: 2012Q2

REPORT INFORMATION
  Report Type: 
  Country: None (occurrence: None)
  Receive Date: 20120621
  Receipt Date: 20120618
  Transmission Date: 20120825
  Serious: No
  Sender: FDA-Public Use
  Company Number: US-PFIZER INC-2012146979

PATIENT
  Sex: Male
  Weight: 77.098 kg

DRUGS (1)
  1. IBUPROFEN (ADVIL) [Suspect]
     Indication: TOOTHACHE
     Dosage: UNK, TABLET 4X/DAY
     Route: 048
     Dates: start: 20120617, end: 20120618

REACTIONS (2)
  - RASH MACULAR [None]
  - PRURITUS [None]
